FAERS Safety Report 14447012 (Version 1)
Quarter: 2018Q1

REPORT INFORMATION
  Report Type: Spontaneous
  Country: US (occurrence: US)
  Receive Date: 20180126
  Receipt Date: 20180126
  Transmission Date: 20180509
  Serious: No
  Sender: FDA-Public Use
  Company Number: US-GLAXOSMITHKLINE-US2018008071

PATIENT
  Age: 94 Year
  Sex: Female

DRUGS (1)
  1. DICLOFENAC SODIUM GEL [Suspect]
     Active Substance: DICLOFENAC SODIUM
     Indication: ARTHRALGIA
     Dosage: UNK

REACTIONS (9)
  - Skin haemorrhage [Unknown]
  - Skin fissures [Unknown]
  - Pruritus [Unknown]
  - Joint swelling [Unknown]
  - Wrong technique in product usage process [Unknown]
  - Pain [Unknown]
  - Anosmia [Unknown]
  - Inappropriate schedule of drug administration [Unknown]
  - Off label use [Unknown]
